FAERS Safety Report 11205002 (Version 1)
Quarter: 2015Q2

REPORT INFORMATION
  Report Type: Spontaneous
  Country: FR (occurrence: FR)
  Receive Date: 20150622
  Receipt Date: 20150622
  Transmission Date: 20150821
  Serious: Yes (Hospitalization, Disabling, Other)
  Sender: FDA-Public Use
  Company Number: FR-AMGEN-FRASP2015060767

PATIENT
  Age: 62 Year
  Sex: Male

DRUGS (16)
  1. FINASTERIDE. [Concomitant]
     Active Substance: FINASTERIDE
     Dosage: UNK
  2. MECIR [Concomitant]
     Active Substance: TAMSULOSIN HYDROCHLORIDE
     Dosage: UNK
  3. ENBREL [Suspect]
     Active Substance: ETANERCEPT
     Indication: PSORIATIC ARTHROPATHY
     Dosage: UNK
     Route: 058
     Dates: start: 2010, end: 2012
  4. LEVEMIR [Concomitant]
     Active Substance: INSULIN DETEMIR
     Dosage: UNK
  5. SERTRALINE [Concomitant]
     Active Substance: SERTRALINE HYDROCHLORIDE
     Dosage: UNK
  6. ZAMUDOL [Concomitant]
     Active Substance: TRAMADOL HYDROCHLORIDE
     Dosage: UNK
  7. ASPEGIC [Concomitant]
     Active Substance: ASPIRIN DL-LYSINE
     Dosage: UNK
  8. OROZAMUDOL [Concomitant]
     Active Substance: TRAMADOL
     Dosage: UNK
  9. INEGY [Concomitant]
     Active Substance: EZETIMIBE\SIMVASTATIN
     Dosage: UNK
  10. NOVORAPID [Concomitant]
     Active Substance: INSULIN ASPART
     Dosage: UNK
  11. PANTOPRAZOLE [Concomitant]
     Active Substance: PANTOPRAZOLE SODIUM
     Dosage: UNK
  12. HUMIRA [Suspect]
     Active Substance: ADALIMUMAB
     Indication: PSORIATIC ARTHROPATHY
     Dosage: UNK
     Route: 065
     Dates: start: 2012, end: 201406
  13. LASILIX                            /00032601/ [Concomitant]
     Active Substance: FUROSEMIDE
     Dosage: UNK
  14. APROVEL [Concomitant]
     Active Substance: IRBESARTAN
     Dosage: UNK
  15. STILNOX [Concomitant]
     Active Substance: ZOLPIDEM TARTRATE
     Dosage: UNK
  16. DAFALGAN [Concomitant]
     Active Substance: ACETAMINOPHEN
     Dosage: UNK

REACTIONS (10)
  - Psoriatic arthropathy [Unknown]
  - Diabetes mellitus inadequate control [Unknown]
  - Deafness bilateral [Unknown]
  - Carpal tunnel syndrome [Unknown]
  - Demyelination [Not Recovered/Not Resolved]
  - Disease recurrence [Unknown]
  - Impaired healing [Unknown]
  - Cardiac failure [Unknown]
  - Neuropathy peripheral [Not Recovered/Not Resolved]
  - Axonal neuropathy [Not Recovered/Not Resolved]

NARRATIVE: CASE EVENT DATE: 20120904
